FAERS Safety Report 4864241-1 (Version None)
Quarter: 2005Q4

REPORT INFORMATION
  Report Type: 
  Country: None (occurrence: None)
  Receive Date: 20051221
  Receipt Date: 20051221
  Transmission Date: 20060501
  Serious: Yes (Hospitalization)
  Sender: FDA-Public Use
  Company Number: None

PATIENT
  Age: 74 Year
  Sex: Male

DRUGS (21)
  1. QUADRAMET [Suspect]
     Indication: BONE PAIN
     Dosage: 72.96 MCI GIVEN ONCE
     Dates: start: 20050915
  2. QUADRAMET [Suspect]
     Indication: METASTASES TO BONE
     Dosage: 72.96 MCI GIVEN ONCE
     Dates: start: 20050915
  3. ASPIRIN [Concomitant]
  4. COLACE [Concomitant]
  5. ZETIA [Concomitant]
  6. DURAGESIC-100 [Concomitant]
  7. FUROSEMIDE [Concomitant]
  8. NEURONTIN [Concomitant]
  9. KYTRIL [Concomitant]
  10. LORTAB [Concomitant]
  11. SYNTHROID [Concomitant]
  12. EPIDURAL [Concomitant]
  13. MORPHINE [Concomitant]
  14. CENTRUM [Concomitant]
  15. PREDNISONE 50MG TAB [Concomitant]
  16. COMPAZINE [Concomitant]
  17. ZOCOR [Concomitant]
  18. ALDACTONE [Concomitant]
  19. FLOMAX [Concomitant]
  20. OXYCODONE [Concomitant]
  21. PRILOSEC [Concomitant]

REACTIONS (3)
  - BACK PAIN [None]
  - NAUSEA [None]
  - PAIN [None]
